FAERS Safety Report 11980206 (Version 2)
Quarter: 2016Q1

REPORT INFORMATION
  Report Type: Spontaneous
  Country: SA (occurrence: SA)
  Receive Date: 20160129
  Receipt Date: 20160205
  Transmission Date: 20160526
  Serious: No
  Sender: FDA-Public Use
  Company Number: PHHY2016SA010372

PATIENT
  Age: 52 Year
  Sex: Male

DRUGS (1)
  1. TASIGNA [Suspect]
     Active Substance: NILOTINIB
     Indication: CHRONIC MYELOID LEUKAEMIA
     Dosage: 300 MG, BID
     Route: 065
     Dates: start: 20160119, end: 20160121

REACTIONS (3)
  - Ejection fraction decreased [Unknown]
  - Fluid retention [Unknown]
  - Product use issue [Unknown]

NARRATIVE: CASE EVENT DATE: 20160119
